FAERS Safety Report 6994332-0 (Version None)
Quarter: 2010Q3

REPORT INFORMATION
  Report Type: 
  Country: None (occurrence: None)
  Receive Date: 20100917
  Receipt Date: 20100830
  Transmission Date: 20110219
  Serious: No
  Sender: FDA-Public Use
  Company Number: US-PFIZER INC-2010109035

PATIENT
  Sex: Male
  Weight: 132 kg

DRUGS (3)
  1. GEODON [Suspect]
     Dosage: 80 MG, 2X/DAY
  2. TOPAMAX [Suspect]
     Dosage: UNK
  3. RISPERDAL [Suspect]
     Dosage: UNK

REACTIONS (2)
  - STRESS [None]
  - WEIGHT FLUCTUATION [None]
